FAERS Safety Report 7990850-7 (Version None)
Quarter: 2011Q4

REPORT INFORMATION
  Report Type: 
  Country: None (occurrence: None)
  Receive Date: 20111219
  Receipt Date: 20111205
  Transmission Date: 20120403
  Serious: Yes (Hospitalization, Other)
  Sender: FDA-Public Use
  Company Number: US-ACTELION-A-US2011-56956

PATIENT

DRUGS (10)
  1. TRACLEER [Suspect]
     Indication: PULMONARY ARTERIAL HYPERTENSION
     Dosage: 125 MG, BID
     Route: 048
     Dates: start: 20040525
  2. FERROUS SULFATE TAB [Concomitant]
  3. ALDACTONE [Concomitant]
  4. VIAGRA [Concomitant]
  5. POTASSIUM CHLORIDE [Concomitant]
  6. EPOPROSTENOL SODIUM [Suspect]
     Indication: PULMONARY ARTERIAL HYPERTENSION
     Dosage: 32 NG/KG, PER MIN
     Route: 042
     Dates: start: 20110904
  7. COUMADIN [Concomitant]
  8. LASIX [Concomitant]
  9. FLOLAN [Suspect]
  10. SILDENAFIL [Concomitant]

REACTIONS (8)
  - DYSPNOEA [None]
  - ABDOMINAL DISTENSION [None]
  - RIGHT VENTRICULAR FAILURE [None]
  - FLUID OVERLOAD [None]
  - DEVICE RELATED INFECTION [None]
  - OEDEMA PERIPHERAL [None]
  - ASCITES [None]
  - CARDIAC FAILURE [None]
